FAERS Safety Report 7347572-5 (Version None)
Quarter: 2011Q1

REPORT INFORMATION
  Report Type: 
  Country: None (occurrence: None)
  Receive Date: 20110311
  Receipt Date: 20110228
  Transmission Date: 20110831
  Serious: Yes (Death, Other)
  Sender: FDA-Public Use
  Company Number: US-TYCO HEALTHCARE/MALLINCKRODT-T201001740

PATIENT
  Sex: Male

DRUGS (3)
  1. OPTIMARK [Suspect]
     Indication: ANGIOGRAM
     Dosage: 40 ML, SINGLE
     Route: 042
     Dates: start: 20050214, end: 20050214
  2. INSULIN [Concomitant]
     Dosage: UNK
     Dates: start: 19880101, end: 20100101
  3. OPTIMARK [Suspect]
     Indication: NUCLEAR MAGNETIC RESONANCE IMAGING BRAIN
     Dosage: 17 ML, SINGLE
     Dates: start: 20040721, end: 20040721

REACTIONS (9)
  - NEPHROGENIC SYSTEMIC FIBROSIS [None]
  - ANXIETY [None]
  - OSTEOARTHRITIS [None]
  - ACUTE MYOCARDIAL INFARCTION [None]
  - OFF LABEL USE [None]
  - DEPRESSION [None]
  - MENTAL STATUS CHANGES [None]
  - CATARACT [None]
  - FEAR OF DEATH [None]
